FAERS Safety Report 8779957 (Version 1)
Quarter: 2012Q4

REPORT INFORMATION
  Report Type: Spontaneous
  Country: US (occurrence: None)
  Receive Date: 20120831
  Receipt Date: 20120831
  Transmission Date: 20130627
  Serious: Yes (Hospitalization)
  Sender: FDA-Public Use
  Company Number: None

PATIENT
  Sex: Male

DRUGS (2)
  1. TRUVADA [Suspect]
     Indication: HIV INFECTION
     Dosage: one capsule per day po
     Route: 048
  2. NORVIR [Suspect]

REACTIONS (3)
  - Anaemia [None]
  - Renal failure [None]
  - Organ failure [None]
